FAERS Safety Report 9781465 (Version 4)
Quarter: 2017Q2

REPORT INFORMATION
  Report Type: Spontaneous
  Country: JP (occurrence: JP)
  Receive Date: 20131224
  Receipt Date: 20170628
  Transmission Date: 20170830
  Serious: Yes (Life-Threatening, Hospitalization)
  Sender: FDA-Public Use
  Company Number: JP-BRISTOL-MYERS SQUIBB COMPANY-19939065

PATIENT
  Age: 76 Year
  Sex: Female
  Weight: 47 kg

DRUGS (14)
  1. MINOMYCIN [Suspect]
     Active Substance: MINOCYCLINE HYDROCHLORIDE
     Indication: PROPHYLAXIS
     Dosage: 24SEP13:06OCT13:100 MG  21NOV13:04DEC13:100 MG :13D CAPSULE
     Route: 048
     Dates: start: 20130924
  2. POLARAMINE [Concomitant]
     Active Substance: DEXCHLORPHENIRAMINE MALEATE
     Indication: PREMEDICATION
     Dosage: INFUSION.  24SEP13  01OCT13  14NOV13
     Route: 042
  3. ALLELOCK [Concomitant]
     Active Substance: OLOPATADINE HYDROCHLORIDE
     Indication: PRURITUS
     Dosage: 20NOV13-20NOV13:5MG BID  21NOV13-04DEC13:10 MG BID :13D
     Route: 048
     Dates: start: 20131120
  4. CETUXIMAB. [Suspect]
     Active Substance: CETUXIMAB
     Indication: NASOPHARYNGEAL CANCER
     Dosage: 580MG:24SEP13 TO 24SEP13  360MG:01OCT13 TO 01OCT13  350MG:4NOV13 TO 14NOV13  1 IN 1 D
     Route: 041
     Dates: start: 20130924
  5. HEPARIN SODIUM. [Concomitant]
     Active Substance: HEPARIN SODIUM
     Dosage: 1 DF, 3 TIMES/WK
     Route: 041
     Dates: start: 20131001
  6. TAKEPRON [Suspect]
     Active Substance: LANSOPRAZOLE
     Indication: GASTROINTESTINAL DISORDER
  7. ALLOID [Concomitant]
     Indication: PHARYNGEAL INFLAMMATION
     Dosage: UNK UNK, TID
     Route: 048
     Dates: start: 20131022, end: 20131104
  8. DECADRON [Concomitant]
     Active Substance: DEXAMETHASONE
     Indication: PREMEDICATION
     Dosage: INFUSION.  24SEP13  01OCT13  14NOV13
     Route: 042
  9. VOLTAREN [Concomitant]
     Active Substance: DICLOFENAC SODIUM
     Indication: OROPHARYNGEAL PAIN
     Dosage: 1 DF, QWK
     Route: 054
     Dates: start: 20131115
  10. MAGMITT [Concomitant]
     Active Substance: MAGNESIUM OXIDE
     Indication: CONSTIPATION
     Dosage: 1DF:1 OR 2 TAB
     Route: 048
     Dates: start: 20131118, end: 20131204
  11. AMINO ACIDS NOS W/CARBOHYDRATES NOS/08260701/ [Concomitant]
     Indication: DEHYDRATION
     Dosage: 1 DF: 500-1000-2000ML/DAY (ALMOST EVERYDAY)
     Route: 041
     Dates: start: 20131009
  12. TAKEPRON [Suspect]
     Active Substance: LANSOPRAZOLE
     Indication: NAUSEA
     Dosage: TABLET
     Route: 048
     Dates: start: 20131115, end: 20131204
  13. CELECOXIB. [Concomitant]
     Active Substance: CELECOXIB
     Indication: OROPHARYNGEAL PAIN
     Dosage: 2 DF, BID
     Route: 048
     Dates: start: 20131115, end: 20140203
  14. PURSENNID                          /00142207/ [Concomitant]
     Active Substance: SENNOSIDES A AND B
     Indication: CONSTIPATION
     Dosage: 12 MG, UNK
     Route: 048
     Dates: start: 20131115

REACTIONS (3)
  - Sepsis [Recovered/Resolved]
  - Radiation skin injury [Recovered/Resolved]
  - Stevens-Johnson syndrome [Recovering/Resolving]

NARRATIVE: CASE EVENT DATE: 201310
